FAERS Safety Report 7639704-6 (Version None)
Quarter: 2011Q3

REPORT INFORMATION
  Report Type: 
  Country: None (occurrence: None)
  Receive Date: 20110727
  Receipt Date: 20110721
  Transmission Date: 20111222
  Serious: Yes (Other)
  Sender: FDA-Public Use
  Company Number: US-PFIZER INC-2011032550

PATIENT
  Sex: Female
  Weight: 61.7 kg

DRUGS (1)
  1. CHANTIX [Suspect]
     Indication: SMOKING CESSATION THERAPY
     Dosage: 0.5 MOL, 1X/DAY
     Route: 048
     Dates: start: 20100101, end: 20100101

REACTIONS (10)
  - MEAN CELL HAEMOGLOBIN INCREASED [None]
  - GENERALISED ANXIETY DISORDER [None]
  - BLOOD PARATHYROID HORMONE DECREASED [None]
  - DEPRESSION [None]
  - ANGER [None]
  - HAEMATOCRIT INCREASED [None]
  - THYROID FUNCTION TEST ABNORMAL [None]
  - MEAN CELL VOLUME INCREASED [None]
  - PLATELET COUNT INCREASED [None]
  - VITAMIN D DECREASED [None]
